FAERS Safety Report 11047027 (Version 1)
Quarter: 2015Q2

REPORT INFORMATION
  Report Type: Spontaneous
  Country: US (occurrence: US)
  Receive Date: 20150420
  Receipt Date: 20150420
  Transmission Date: 20150821
  Serious: No
  Sender: FDA-Public Use
  Company Number: US-LEO PHARMA-232919

PATIENT
  Age: 62 Year
  Sex: Female

DRUGS (1)
  1. PICATO [Suspect]
     Active Substance: INGENOL MEBUTATE
     Indication: BASAL CELL CARCINOMA
     Route: 061

REACTIONS (8)
  - Application site erythema [Recovered/Resolved]
  - Application site erosion [Recovered/Resolved]
  - Scar [Recovering/Resolving]
  - Application site pruritus [Recovered/Resolved]
  - Erythema [Recovered/Resolved]
  - Product use issue [Unknown]
  - Skin erosion [Recovered/Resolved]
  - Application site induration [Recovered/Resolved]
